FAERS Safety Report 4656214-9 (Version None)
Quarter: 2005Q2

REPORT INFORMATION
  Report Type: 
  Country: None (occurrence: None)
  Receive Date: 20050509
  Receipt Date: 20050223
  Transmission Date: 20051028
  Serious: No
  Sender: FDA-Public Use
  Company Number: US-GLAXOSMITHKLINE-A0546965A

PATIENT
  Sex: Male

DRUGS (4)
  1. AVANDAMET [Suspect]
     Route: 048
  2. AVANDIA [Suspect]
     Dosage: 8MG PER DAY
     Route: 048
  3. LISINOPRIL [Concomitant]
  4. NEURONTIN [Concomitant]

REACTIONS (1)
  - BLOOD GLUCOSE INCREASED [None]
